FAERS Safety Report 7811926-0 (Version None)
Quarter: 2011Q4

REPORT INFORMATION
  Report Type: 
  Country: None (occurrence: None)
  Receive Date: 20111013
  Receipt Date: 20111011
  Transmission Date: 20120403
  Serious: Yes (Death, Other)
  Sender: FDA-Public Use
  Company Number: PHFR2011GB05821

PATIENT
  Sex: Male

DRUGS (1)
  1. CLOZARIL [Suspect]
     Indication: SCHIZOPHRENIA
     Route: 048
     Dates: start: 20090807

REACTIONS (5)
  - FOREIGN BODY [None]
  - PNEUMONIA [None]
  - FUNCTIONAL GASTROINTESTINAL DISORDER [None]
  - INTESTINAL PERFORATION [None]
  - HALLUCINATION, AUDITORY [None]
